FAERS Safety Report 13340895 (Version 2)
Quarter: 2017Q3

REPORT INFORMATION
  Report Type: Spontaneous
  Country: US (occurrence: US)
  Receive Date: 20170316
  Receipt Date: 20170711
  Transmission Date: 20171127
  Serious: No
  Sender: FDA-Public Use
  Company Number: US-TEVA-747307ACC

PATIENT
  Age: 44 Year
  Sex: Female

DRUGS (5)
  1. VITAMIN D [Concomitant]
     Active Substance: CHOLECALCIFEROL
  2. LIPITOR [Concomitant]
     Active Substance: ATORVASTATIN CALCIUM
  3. GABAPENTIN. [Concomitant]
     Active Substance: GABAPENTIN
  4. CYMBALTA [Concomitant]
     Active Substance: DULOXETINE HYDROCHLORIDE
  5. COPAXONE [Suspect]
     Active Substance: GLATIRAMER ACETATE
     Indication: MULTIPLE SCLEROSIS
     Dosage: PFS
     Route: 058
     Dates: start: 20160820

REACTIONS (8)
  - Headache [Unknown]
  - Gait disturbance [Unknown]
  - Insomnia [Unknown]
  - Injection site pain [Unknown]
  - Hepatic enzyme increased [Unknown]
  - Tremor [Unknown]
  - Vertigo [Unknown]
  - Therapy cessation [Unknown]

NARRATIVE: CASE EVENT DATE: 201701
